FAERS Safety Report 14784718 (Version 2)
Quarter: 2018Q2

REPORT INFORMATION
  Report Type: Report from Study
  Country: CA (occurrence: CA)
  Receive Date: 20180420
  Receipt Date: 20180510
  Transmission Date: 20180711
  Serious: Yes (Death, Hospitalization, Other)
  Sender: FDA-Public Use
  Company Number: CA-BRISTOL-MYERS SQUIBB COMPANY-BMS-2018-028832

PATIENT
  Age: 40 Year
  Sex: Female

DRUGS (2)
  1. YERVOY [Suspect]
     Active Substance: IPILIMUMAB
     Indication: MALIGNANT MELANOMA
     Dosage: 3 MG/KG, UNK
     Route: 042
     Dates: start: 20180228, end: 20180228
  2. NIVOLUMAB [Suspect]
     Active Substance: NIVOLUMAB
     Indication: MALIGNANT MELANOMA
     Dosage: 1 MG/KG, UNK
     Route: 042
     Dates: start: 20180228, end: 20180228

REACTIONS (15)
  - Hypophagia [Not Recovered/Not Resolved]
  - Blood creatinine increased [Unknown]
  - Haemoglobin decreased [Unknown]
  - Gastrointestinal haemorrhage [Unknown]
  - Transaminases increased [Unknown]
  - Jaundice [Unknown]
  - Malignant neoplasm progression [Fatal]
  - Melaena [Unknown]
  - Liver function test increased [Unknown]
  - Abdominal pain [Unknown]
  - Fatigue [Unknown]
  - Tumour lysis syndrome [Unknown]
  - Autoimmune hepatitis [Recovered/Resolved]
  - Intra-abdominal haemorrhage [Unknown]
  - Abdominal distension [Unknown]

NARRATIVE: CASE EVENT DATE: 20180315
